FAERS Safety Report 17562596 (Version 1)
Quarter: 2020Q1

REPORT INFORMATION
  Report Type: Spontaneous
  Country: US (occurrence: US)
  Receive Date: 20200319
  Receipt Date: 20200319
  Transmission Date: 20200409
  Serious: No
  Sender: FDA-Public Use
  Company Number: US-ASTRAZENECA-2020SE27314

PATIENT
  Age: 706 Month
  Sex: Male
  Weight: 72.1 kg

DRUGS (15)
  1. ASPIRIN. [Concomitant]
     Active Substance: ASPIRIN
     Route: 065
  2. AMLODIPINE BESYLATE. [Concomitant]
     Active Substance: AMLODIPINE BESYLATE
     Indication: HYPERTENSION
     Route: 048
  3. LEVALBUTEROL TARTRATE HFA [Concomitant]
     Indication: INHALATION THERAPY
     Route: 055
  4. VITAMIN D [Concomitant]
     Active Substance: VITAMIN D NOS
     Route: 065
  5. MG OXIDE [Concomitant]
     Dosage: 400 MG ONCE EVERY 3 DAYS
     Route: 065
  6. BYSTOLIC [Concomitant]
     Active Substance: NEBIVOLOL HYDROCHLORIDE
     Indication: HYPERTENSION
     Route: 048
  7. ATORVASTATIN [Concomitant]
     Active Substance: ATORVASTATIN
     Route: 065
  8. SYMBICORT [Suspect]
     Active Substance: BUDESONIDE\FORMOTEROL FUMARATE DIHYDRATE
     Indication: CHRONIC OBSTRUCTIVE PULMONARY DISEASE
     Dosage: 160/4.5 MCG, TWO PUFFS TWICE DAILY
     Route: 055
  9. INCRUZ ELLIPTA [Concomitant]
     Indication: INHALATION THERAPY
     Route: 055
  10. ESOMEPRAZOLE. [Concomitant]
     Active Substance: ESOMEPRAZOLE MAGNESIUM
     Route: 065
  11. HYDROCODONE [Concomitant]
     Active Substance: HYDROCODONE
     Dosage: 10/325 BID
     Route: 065
  12. ENALAPRIL [Concomitant]
     Active Substance: ENALAPRIL
     Indication: HYPERTENSION
     Route: 048
  13. XANAX [Concomitant]
     Active Substance: ALPRAZOLAM
     Route: 065
  14. OXYCODONE [Concomitant]
     Active Substance: OXYCODONE
     Dosage: 5 MG GHS
     Route: 065
  15. NITROGLYCERINE [Concomitant]
     Active Substance: NITROGLYCERIN
     Indication: CHEST PAIN
     Dosage: 0.4 MG AS NEEDED
     Route: 065

REACTIONS (9)
  - Wrong technique in product usage process [Unknown]
  - Visual impairment [Unknown]
  - Product dose omission [Unknown]
  - Dyspnoea [Unknown]
  - Malaise [Unknown]
  - Device malfunction [Unknown]
  - Incorrect dose administered [Unknown]
  - Intentional device misuse [Unknown]
  - Blood pressure increased [Unknown]

NARRATIVE: CASE EVENT DATE: 201904
